FAERS Safety Report 10142408 (Version 2)
Quarter: 2014Q2

REPORT INFORMATION
  Report Type: Spontaneous
  Country: DE (occurrence: DE)
  Receive Date: 20140430
  Receipt Date: 20140529
  Transmission Date: 20141212
  Serious: Yes (Other)
  Sender: FDA-Public Use
  Company Number: DE-AMGEN-DEUSP2014030202

PATIENT
  Age: 78 Year
  Sex: Female
  Weight: 75 kg

DRUGS (6)
  1. XGEVA [Suspect]
     Indication: BREAST CANCER METASTATIC
     Dosage: 120 MG, UNK
     Route: 065
     Dates: start: 201402
  2. OMEPRAZOLE [Concomitant]
     Indication: METASTASES TO ABDOMINAL CAVITY
     Dosage: 40 UNK, QD
     Route: 048
  3. RAMIPRIL [Concomitant]
     Indication: HYPERTENSION
     Dosage: 10 UNK, QD
     Route: 048
  4. TAMOXIFEN [Concomitant]
     Indication: BREAST CANCER
     Dosage: 20 UNK, QD
     Route: 048
     Dates: start: 1998
  5. ABRAXANE                           /01116001/ [Concomitant]
     Indication: BREAST CANCER
     Dosage: UNK
     Dates: start: 201303, end: 201309
  6. IBANDRONATE [Concomitant]
     Dosage: UNK
     Route: 042
     Dates: start: 200706, end: 201202

REACTIONS (4)
  - Osteonecrosis of jaw [Unknown]
  - Oral cavity fistula [Unknown]
  - Infection [Unknown]
  - Osteitis [Unknown]
